FAERS Safety Report 8482829 (Version 6)
Quarter: 2017Q4

REPORT INFORMATION
  Report Type: Spontaneous
  Country: US (occurrence: US)
  Receive Date: 20120329
  Receipt Date: 20171114
  Transmission Date: 20180321
  Serious: Yes (Hospitalization, Disabling, Other)
  Sender: FDA-Public Use
  Company Number: US-MSD-1203USA03352

PATIENT
  Sex: Female
  Weight: 58.6 kg

DRUGS (6)
  1. PATANASE [Concomitant]
     Active Substance: OLOPATADINE HYDROCHLORIDE
     Indication: SEASONAL ALLERGY
  2. FOSAMAX [Suspect]
     Active Substance: ALENDRONATE SODIUM
     Indication: OSTEOPOROSIS
     Dosage: 70 MG, QW
     Route: 048
     Dates: start: 20020718, end: 20080104
  3. ALENDRONATE SODIUM. [Suspect]
     Active Substance: ALENDRONATE SODIUM
     Indication: OSTEOPOROSIS
     Dosage: 70 MG, QW
     Route: 048
     Dates: start: 20080404, end: 201105
  4. BLACK COHOSH [Concomitant]
     Active Substance: BLACK COHOSH
     Indication: POSTMENOPAUSE
  5. METICORTEN [Concomitant]
     Active Substance: PREDNISONE
     Indication: POLYMYALGIA RHEUMATICA
     Dates: start: 200806, end: 200812
  6. CALCIUM (UNSPECIFIED) (+) VITAMIN D (UNSPECIFIED) [Concomitant]
     Active Substance: CALCIUM CARBONATE\VITAMIN D
     Indication: OSTEOPOROSIS
     Dosage: 600-200 MG
     Route: 048

REACTIONS (56)
  - Femur fracture [Unknown]
  - Haemorrhoids [Unknown]
  - Tenosynovitis stenosans [Unknown]
  - Intervertebral disc degeneration [Unknown]
  - Limb injury [Unknown]
  - Body height decreased [Unknown]
  - Hypercholesterolaemia [Unknown]
  - Road traffic accident [Unknown]
  - Sinus disorder [Unknown]
  - Low turnover osteopathy [Unknown]
  - Upper-airway cough syndrome [Unknown]
  - Uterine leiomyoma [Unknown]
  - Weight decreased [Unknown]
  - Hypercalcaemia [Unknown]
  - Osteopenia [Unknown]
  - Plasma cell myeloma [Unknown]
  - Femur fracture [Unknown]
  - Kyphosis [Unknown]
  - Soft tissue injury [Unknown]
  - Upper respiratory tract infection [Unknown]
  - Irritable bowel syndrome [Unknown]
  - Hepatic cyst [Unknown]
  - Pulmonary mass [Unknown]
  - C-reactive protein increased [Unknown]
  - Cardiovascular disorder [Unknown]
  - Fall [Unknown]
  - Lumbar vertebral fracture [Unknown]
  - Hypertension [Unknown]
  - Stress fracture [Unknown]
  - Appendicitis [Unknown]
  - Repetitive strain injury [Unknown]
  - Gastritis erosive [Not Recovered/Not Resolved]
  - Mitral valve disease [Unknown]
  - Urinary tract infection [Unknown]
  - Urine calcium decreased [Unknown]
  - Iron deficiency anaemia [Unknown]
  - Osteoporosis [Unknown]
  - Trigger finger [Unknown]
  - Interstitial lung disease [Not Recovered/Not Resolved]
  - Hypertensive heart disease [Unknown]
  - Anxiety [Unknown]
  - Scoliosis [Unknown]
  - Tonsillar disorder [Unknown]
  - Adverse event [Unknown]
  - Skin lesion [Unknown]
  - Photopsia [Unknown]
  - Vitreous floaters [Unknown]
  - Spinal compression fracture [Not Recovered/Not Resolved]
  - Gait disturbance [Unknown]
  - Pain in extremity [Unknown]
  - Urinary retention postoperative [Unknown]
  - Diverticulum [Unknown]
  - Occult blood positive [Unknown]
  - Urinary tract infection [Unknown]
  - Spinal compression fracture [Unknown]
  - Cardiac murmur [Unknown]

NARRATIVE: CASE EVENT DATE: 2002
